FAERS Safety Report 9036213 (Version 2)
Quarter: 2013Q2

REPORT INFORMATION
  Report Type: Spontaneous
  Country: US (occurrence: US)
  Receive Date: 20130129
  Receipt Date: 20130426
  Transmission Date: 20140414
  Serious: Yes (Hospitalization, Other)
  Sender: FDA-Public Use
  Company Number: PHEH2013US002267

PATIENT
  Age: 41 Year
  Sex: Female
  Weight: 108.84 kg

DRUGS (11)
  1. GILENYA [Suspect]
     Indication: MULTIPLE SCLEROSIS
     Dosage: 0.5 MG, QD
     Route: 048
     Dates: start: 20120118
  2. VALIUM [Concomitant]
     Dosage: UNK UKN, UNK
  3. ESTROGEN NOS [Concomitant]
     Dosage: UNK UKN, UNK
  4. VITAMIN D [Concomitant]
     Dosage: UNK UKN, UNK
  5. HYDROCODONE [Concomitant]
     Dosage: UNK UKN, PRN
  6. CYMBALTA [Concomitant]
     Indication: DEPRESSION
     Dosage: 30 MG, QD
     Route: 048
     Dates: start: 20121009
  7. FAMOTIDIN [Concomitant]
     Dosage: UNK UKN, UNK
  8. METFORMIN [Concomitant]
     Indication: DIABETES MELLITUS
     Dosage: 500 MG, QD
     Route: 048
     Dates: start: 201108
  9. DIAZEPAM [Concomitant]
     Indication: TREMOR
     Dosage: 10 MG, QD
     Route: 048
     Dates: start: 2012
  10. ESTRADIOL [Concomitant]
     Indication: OESTROGEN REPLACEMENT THERAPY
     Dosage: 1 MG, QD
     Route: 048
     Dates: start: 2012
  11. SYNTHROID [Concomitant]
     Indication: THYROID DISORDER
     Dosage: UNK
     Route: 048

REACTIONS (6)
  - Squamous cell carcinoma of the cervix [Recovering/Resolving]
  - Vaginal haemorrhage [Unknown]
  - Thrombosis [Unknown]
  - Uterine spasm [Unknown]
  - Platelet count decreased [Unknown]
  - White blood cell count decreased [Unknown]
